FAERS Safety Report 8631457 (Version 2)
Quarter: 2013Q1

REPORT INFORMATION
  Report Type: Spontaneous
  Country: US (occurrence: US)
  Receive Date: 20120622
  Receipt Date: 20130125
  Transmission Date: 20140127
  Serious: Yes (Death, Hospitalization, Other)
  Sender: FDA-Public Use
  Company Number: US-ELI_LILLY_AND_COMPANY-US201206006364

PATIENT
  Age: 62 Year
  Sex: Male

DRUGS (1)
  1. BYETTA [Suspect]
     Dosage: UNK
     Dates: start: 2008, end: 201006

REACTIONS (5)
  - Pancreatic carcinoma [Fatal]
  - Respiratory failure [Recovered/Resolved]
  - Deep vein thrombosis [Unknown]
  - Pancreatitis [Unknown]
  - Renal failure acute [Recovered/Resolved]
